FAERS Safety Report 23484914 (Version 1)
Quarter: 2024Q1

REPORT INFORMATION
  Report Type: Other
  Country: CN (occurrence: CN)
  Receive Date: 20240206
  Receipt Date: 20240206
  Transmission Date: 20240410
  Serious: Yes (Other)
  Sender: FDA-Public Use
  Company Number: CN-QILU PHARMACEUTICAL CO.LTD.-QLU-000015-2024

PATIENT
  Age: 36 Year
  Sex: Female
  Weight: 54 kg

DRUGS (2)
  1. TENOFOVIR DISOPROXIL FUMARATE [Suspect]
     Active Substance: TENOFOVIR DISOPROXIL FUMARATE
     Indication: Chronic hepatitis B
     Dosage: 300 MG PER DAY
     Route: 048
     Dates: start: 20230824, end: 20240111
  2. PEGYLATED INTERFERON ALPHA NOS [Suspect]
     Active Substance: PEGINTERFERON ALFA-2A OR PEGINTERFERON ALFA-2B
     Indication: Chronic hepatitis B
     Dosage: 180 UG ONCE A WEEK
     Route: 058
     Dates: start: 20230824, end: 20240111

REACTIONS (2)
  - Neutropenia [Recovered/Resolved]
  - Myelosuppression [Recovered/Resolved]

NARRATIVE: CASE EVENT DATE: 20240104
